FAERS Safety Report 5345325-0 (Version None)
Quarter: 2007Q2

REPORT INFORMATION
  Report Type: 
  Country: None (occurrence: None)
  Receive Date: 20070601
  Receipt Date: 20070516
  Transmission Date: 20071010
  Serious: Yes (Disabling)
  Sender: FDA-Public Use
  Company Number: 200701004

PATIENT
  Age: 51 Year
  Sex: Male

DRUGS (2)
  1. TESTIM [Suspect]
     Indication: ERECTILE DYSFUNCTION
     Dosage: 50 MG, DAILY, TRANSDERMAL
     Route: 062
     Dates: start: 20061201, end: 20070101
  2. TESTIM [Suspect]
     Indication: ERECTILE DYSFUNCTION
     Dosage: 50 MG, DAILY, TRANSDERMAL
     Route: 062
     Dates: start: 20070301

REACTIONS (3)
  - GAIT DISTURBANCE [None]
  - OEDEMA PERIPHERAL [None]
  - UNEVALUABLE EVENT [None]
